FAERS Safety Report 11627778 (Version 3)
Quarter: 2015Q4

REPORT INFORMATION
  Report Type: Spontaneous
  Country: JP (occurrence: JP)
  Receive Date: 20151014
  Receipt Date: 20151126
  Transmission Date: 20160304
  Serious: Yes (Hospitalization, Other)
  Sender: FDA-Public Use
  Company Number: JP-ASTRAZENECA-2015SE96366

PATIENT
  Age: 68 Year
  Sex: Female
  Weight: 48.1 kg

DRUGS (17)
  1. FASLODEX [Suspect]
     Active Substance: FULVESTRANT
     Indication: BREAST CANCER
     Route: 030
  2. CODE NOT BROKEN [Suspect]
     Active Substance: UNSPECIFIED INGREDIENT
     Indication: INVASIVE DUCTAL BREAST CARCINOMA
     Route: 065
     Dates: start: 20150116, end: 20150126
  3. LOBU [Concomitant]
     Active Substance: LOBUCAVIR
     Indication: BACK PAIN
     Dates: start: 201312
  4. REBAMIPIDE [Concomitant]
     Active Substance: REBAMIPIDE
     Indication: PROPHYLAXIS
     Dates: start: 201312
  5. LOXOPROFEN [Concomitant]
     Active Substance: LOXOPROFEN
     Dates: start: 201312
  6. FERROMIA [Concomitant]
     Active Substance: FERROUS CITRATE
     Indication: ANAEMIA
     Dates: start: 20150805
  7. CODE NOT BROKEN [Suspect]
     Active Substance: UNSPECIFIED INGREDIENT
     Indication: INVASIVE DUCTAL BREAST CARCINOMA
     Route: 065
     Dates: start: 20150819, end: 20150925
  8. TANATRIL [Concomitant]
     Active Substance: IMIDAPRIL
     Indication: HYPERTENSION
     Dates: start: 201410
  9. RANMARK [Concomitant]
     Active Substance: DENOSUMAB
     Dates: start: 20150116
  10. ASPARA POTASSIUM [Concomitant]
     Active Substance: POTASSIUM ASPARTATE
     Indication: HYPOKALAEMIA
     Dates: start: 20150313
  11. ATELEC [Concomitant]
     Active Substance: CILNIDIPINE
     Indication: HYPERTENSION
     Dates: start: 201410
  12. LIMAPROST ALFADEX [Concomitant]
     Active Substance: LIMAPROST
     Indication: BACK PAIN
     Dates: start: 201312
  13. LOPEMIN [Concomitant]
     Active Substance: LOPERAMIDE HYDROCHLORIDE
     Indication: DIARRHOEA
     Dates: start: 20150126
  14. ZYPREXA [Concomitant]
     Active Substance: OLANZAPINE
     Indication: NAUSEA
     Dates: start: 20150127
  15. POLAPREZINC [Concomitant]
     Active Substance: POLAPREZINC
     Dates: start: 20150313
  16. NEXIUM [Concomitant]
     Active Substance: ESOMEPRAZOLE MAGNESIUM
     Indication: GASTROOESOPHAGEAL REFLUX DISEASE
     Dates: start: 20150818
  17. CODE NOT BROKEN [Suspect]
     Active Substance: UNSPECIFIED INGREDIENT
     Indication: INVASIVE DUCTAL BREAST CARCINOMA
     Route: 065
     Dates: start: 20150204, end: 20150813

REACTIONS (1)
  - Colon cancer [Not Recovered/Not Resolved]
